FAERS Safety Report 18351404 (Version 8)
Quarter: 2021Q3

REPORT INFORMATION
  Report Type: Other
  Country: CA (occurrence: CA)
  Receive Date: 20201006
  Receipt Date: 20210924
  Transmission Date: 20211014
  Serious: Yes (Hospitalization, Other)
  Sender: FDA-Public Use
  Company Number: CA-APOTEX-2020AP018989

PATIENT
  Age: 60 Year
  Sex: Female
  Weight: 61 kg

DRUGS (26)
  1. MOXIFLOXACIN. [Suspect]
     Active Substance: MOXIFLOXACIN
     Indication: PRODUCT USED FOR UNKNOWN INDICATION
     Dosage: 400 MILLIGRAM, QD
     Route: 065
  2. HIZENTRA [Suspect]
     Active Substance: HUMAN IMMUNOGLOBULIN G
     Indication: PRODUCT USED FOR UNKNOWN INDICATION
     Dosage: UNK, ONCE
     Route: 058
  3. WELLBUTRIN [Suspect]
     Active Substance: BUPROPION HYDROCHLORIDE
     Dosage: 150 MILLIGRAM, BID
     Route: 065
  4. PREDNISONE. [Suspect]
     Active Substance: PREDNISONE
     Indication: PRODUCT USED FOR UNKNOWN INDICATION
     Dosage: 50 MILLIGRAM, QD
     Route: 065
  5. SALBUTAMOL [Suspect]
     Active Substance: ALBUTEROL
     Indication: ASTHMA
     Dosage: UNK
     Route: 065
  6. ALVESCO [Suspect]
     Active Substance: CICLESONIDE
     Dosage: 2 DOSAGE FORM, BID
  7. VITAMIN D [ERGOCALCIFEROL] [Suspect]
     Active Substance: ERGOCALCIFEROL
     Indication: PRODUCT USED FOR UNKNOWN INDICATION
     Dosage: UNK UNK, QD
     Route: 065
  8. WELLBUTRIN [Suspect]
     Active Substance: BUPROPION HYDROCHLORIDE
     Indication: PRODUCT USED FOR UNKNOWN INDICATION
     Dosage: 150 MILLIGRAM, BID
     Route: 065
  9. ERGOCALCIFEROL. [Suspect]
     Active Substance: ERGOCALCIFEROL
     Indication: PRODUCT USED FOR UNKNOWN INDICATION
     Dosage: UNK UNK, QD
     Route: 065
  10. CITALOPRAM [Suspect]
     Active Substance: CITALOPRAM HYDROBROMIDE
     Indication: PRODUCT USED FOR UNKNOWN INDICATION
     Dosage: 10 MILLIGRAM, QD
     Route: 065
  11. BREO ELLIPTA [Suspect]
     Active Substance: FLUTICASONE FUROATE\VILANTEROL TRIFENATATE
     Indication: PRODUCT USED FOR UNKNOWN INDICATION
     Dosage: UNK
     Route: 065
  12. WELLBUTRIN [Suspect]
     Active Substance: BUPROPION HYDROCHLORIDE
     Dosage: 2 DOSAGE FORM
     Route: 065
  13. CALCIUM CARBONATE. [Suspect]
     Active Substance: CALCIUM CARBONATE
     Dosage: UNK QD
     Route: 065
  14. CEFUROXIME. [Suspect]
     Active Substance: CEFUROXIME
     Dosage: 500 MILLIGRAM, QD
     Route: 065
  15. ERGOCALCIFEROL. [Suspect]
     Active Substance: ERGOCALCIFEROL
     Dosage: 1 DOSAGE FORM
     Route: 065
  16. UMECLIDINIUM BROMIDE;VILANTEROL TRIFENATATE [Suspect]
     Active Substance: UMECLIDINIUM BROMIDE\VILANTEROL TRIFENATATE
     Indication: PRODUCT USED FOR UNKNOWN INDICATION
     Dosage: 25 MILLIGRAM, QD
     Route: 065
  17. WELLBUTRIN [Suspect]
     Active Substance: BUPROPION HYDROCHLORIDE
     Indication: PRODUCT USED FOR UNKNOWN INDICATION
     Dosage: 150 MILLIGRAM, QD
     Route: 065
  18. UMECLIDINIUM BROMIDE [Suspect]
     Active Substance: UMECLIDINIUM BROMIDE
     Indication: PRODUCT USED FOR UNKNOWN INDICATION
     Dosage: UNK
     Route: 065
  19. NICOTINE. [Concomitant]
     Active Substance: NICOTINE
     Indication: PRODUCT USED FOR UNKNOWN INDICATION
     Dosage: UNK
     Route: 065
  20. CALCIUM CARBONATE. [Suspect]
     Active Substance: CALCIUM CARBONATE
     Indication: PRODUCT USED FOR UNKNOWN INDICATION
     Dosage: 1 DOSAGE FORM, QD
     Route: 065
  21. PREDNISONE. [Suspect]
     Active Substance: PREDNISONE
     Dosage: 25 MILLIGRAM, QD
     Route: 065
  22. ALVESCO [Suspect]
     Active Substance: CICLESONIDE
     Indication: PRODUCT USED FOR UNKNOWN INDICATION
     Dosage: 2 DOSAGE FORM, QD
     Route: 065
  23. ALVESCO [Suspect]
     Active Substance: CICLESONIDE
     Dosage: 200 MICROGRAM, BID
     Route: 065
  24. PARIET [Suspect]
     Active Substance: RABEPRAZOLE SODIUM
     Indication: PRODUCT USED FOR UNKNOWN INDICATION
     Dosage: 20 MILLIGRAM, BID
     Route: 065
  25. CEFUROXIME. [Suspect]
     Active Substance: CEFUROXIME
     Indication: PRODUCT USED FOR UNKNOWN INDICATION
     Dosage: 500 MILLIGRAM, BID
     Route: 065
  26. ATIVAN [Suspect]
     Active Substance: LORAZEPAM
     Indication: PRODUCT USED FOR UNKNOWN INDICATION
     Dosage: 1 MILLIGRAM, QD
     Route: 065

REACTIONS (16)
  - Sputum purulent [Unknown]
  - Wheezing [Unknown]
  - Constipation [Unknown]
  - Secondary immunodeficiency [Unknown]
  - Hypersensitivity [Unknown]
  - Blood count abnormal [Unknown]
  - Obstructive airways disorder [Unknown]
  - Abdominal distension [Unknown]
  - Fatigue [Unknown]
  - Abdominal pain [Unknown]
  - Therapeutic product effect incomplete [Unknown]
  - Drug intolerance [Unknown]
  - Myalgia [Unknown]
  - Nicotine dependence [Unknown]
  - Asthma [Unknown]
  - Cough [Unknown]
